FAERS Safety Report 16237334 (Version 1)
Quarter: 2019Q2

REPORT INFORMATION
  Report Type: Spontaneous
  Country: US (occurrence: US)
  Receive Date: 20190425
  Receipt Date: 20190425
  Transmission Date: 20190711
  Serious: No
  Sender: FDA-Public Use
  Company Number: US-TEVA-2019-US-1040357

PATIENT
  Sex: Female

DRUGS (4)
  1. CARBIDOPA AND LEVODOPA [Suspect]
     Active Substance: CARBIDOPA\LEVODOPA
     Indication: DYSTONIA
  2. CARBIDOPA AND LEVODOPA MYLAN [Suspect]
     Active Substance: CARBIDOPA\LEVODOPA
     Indication: PARKINSON^S DISEASE
     Dates: start: 20190414
  3. CARBIDOPA AND LEVODOPA MYLAN [Suspect]
     Active Substance: CARBIDOPA\LEVODOPA
     Indication: DYSTONIA
  4. CARBIDOPA AND LEVODOPA [Suspect]
     Active Substance: CARBIDOPA\LEVODOPA
     Indication: PARKINSON^S DISEASE
     Dosage: CARBIDOPA AND LEVODOPA : 25/100 MG
     Dates: start: 20190414

REACTIONS (3)
  - Musculoskeletal stiffness [Unknown]
  - Dystonia [Unknown]
  - Drug ineffective [Unknown]

NARRATIVE: CASE EVENT DATE: 20190414
